FAERS Safety Report 17846194 (Version 2)
Quarter: 2020Q2

REPORT INFORMATION
  Report Type: Report from Study
  Country: CA (occurrence: CA)
  Receive Date: 20200601
  Receipt Date: 20200627
  Transmission Date: 20200714
  Serious: Yes (Hospitalization, Other)
  Sender: FDA-Public Use
  Company Number: CA-ROCHE-1362818

PATIENT
  Age: 66 Year
  Sex: Male
  Weight: 85.5 kg

DRUGS (27)
  1. PANTOPRAZOLE [Concomitant]
     Active Substance: PANTOPRAZOLE
     Dosage: 1 TABLET 1 HOURS PRIOR TO MRI
     Route: 065
  2. METHOTREXATE. [Concomitant]
     Active Substance: METHOTREXATE
  3. OMEGA 3 [DOCOSAHEXAENOIC ACID;EICOSAPENTAENOIC ACID] [Concomitant]
     Active Substance: DOCONEXENT\ICOSAPENT
  4. APO-CLOPIDOGREL [Concomitant]
     Active Substance: CLOPIDOGREL BISULFATE
     Route: 065
  5. ACTEMRA [Suspect]
     Active Substance: TOCILIZUMAB
     Indication: RHEUMATOID ARTHRITIS
     Route: 042
     Dates: start: 20131219
  6. ACTEMRA [Suspect]
     Active Substance: TOCILIZUMAB
     Route: 042
     Dates: start: 20150721, end: 20160913
  7. DIPHENHYDRAMINE HCL [Concomitant]
     Active Substance: DIPHENHYDRAMINE HYDROCHLORIDE
     Route: 048
     Dates: start: 20161101
  8. ACETAMINOPHEN. [Concomitant]
     Active Substance: ACETAMINOPHEN
     Route: 048
     Dates: start: 20161101
  9. CYCLOBENZAPRINE. [Concomitant]
     Active Substance: CYCLOBENZAPRINE
     Route: 065
  10. MIRTAZAPINE TEVA [Concomitant]
     Active Substance: MIRTAZAPINE
     Dosage: 1/4TH DOSE AT BEDTIME
     Route: 065
  11. ACTEMRA [Suspect]
     Active Substance: TOCILIZUMAB
     Route: 042
     Dates: start: 20140116
  12. ACTEMRA [Suspect]
     Active Substance: TOCILIZUMAB
     Route: 042
     Dates: start: 20150623
  13. RITUXAN [Suspect]
     Active Substance: RITUXIMAB
     Indication: RHEUMATOID ARTHRITIS
     Route: 042
     Dates: start: 20161101
  14. FOLIC ACID. [Concomitant]
     Active Substance: FOLIC ACID
     Route: 065
  15. VITAMIN C [Concomitant]
     Active Substance: ASCORBIC ACID
  16. PREGABALIN. [Concomitant]
     Active Substance: PREGABALIN
     Route: 065
  17. PREGABALIN. [Concomitant]
     Active Substance: PREGABALIN
     Route: 065
  18. XARELTO [Concomitant]
     Active Substance: RIVAROXABAN
     Route: 065
  19. SOTALOL. [Concomitant]
     Active Substance: SOTALOL
  20. ALENDRONATE TEVA [Concomitant]
     Active Substance: ALENDRONATE SODIUM
     Route: 065
  21. SIMVASTATIN. [Concomitant]
     Active Substance: SIMVASTATIN
  22. HYDROMORPHONE HCL [Concomitant]
     Active Substance: HYDROMORPHONE HYDROCHLORIDE
     Route: 065
  23. PREGABALIN. [Concomitant]
     Active Substance: PREGABALIN
     Route: 065
  24. RAMIPRIL. [Concomitant]
     Active Substance: RAMIPRIL
     Route: 065
  25. LORAZEPAM. [Concomitant]
     Active Substance: LORAZEPAM
  26. APO-PREDNISONE [Concomitant]
     Active Substance: PREDNISONE
     Route: 065
  27. ASA [Concomitant]
     Active Substance: ASPIRIN
     Route: 065

REACTIONS (28)
  - Pneumonia [Recovering/Resolving]
  - Heart rate decreased [Unknown]
  - Rheumatoid arthritis [Not Recovered/Not Resolved]
  - Musculoskeletal stiffness [Recovering/Resolving]
  - Depression [Unknown]
  - Body temperature decreased [Unknown]
  - Heart rate increased [Recovered/Resolved]
  - Tooth disorder [Not Recovered/Not Resolved]
  - Emphysema [Unknown]
  - Fatigue [Not Recovered/Not Resolved]
  - Arthralgia [Recovering/Resolving]
  - Blood pressure increased [Unknown]
  - Blister [Unknown]
  - Back pain [Not Recovered/Not Resolved]
  - Lower gastrointestinal haemorrhage [Unknown]
  - Atrial fibrillation [Unknown]
  - Gastroenteritis viral [Recovering/Resolving]
  - Peripheral swelling [Not Recovered/Not Resolved]
  - Insomnia [Unknown]
  - Blood pressure fluctuation [Unknown]
  - Hypotension [Not Recovered/Not Resolved]
  - Drug ineffective [Unknown]
  - Weight increased [Unknown]
  - Joint swelling [Not Recovered/Not Resolved]
  - Infusion related reaction [Unknown]
  - Bronchitis [Recovered/Resolved]
  - Hypotension [Unknown]
  - Oxygen saturation decreased [Unknown]

NARRATIVE: CASE EVENT DATE: 20140408
